FAERS Safety Report 17999786 (Version 1)
Quarter: 2020Q3

REPORT INFORMATION
  Report Type: Report from Study
  Country: US (occurrence: US)
  Receive Date: 20200709
  Receipt Date: 20200709
  Transmission Date: 20201103
  Serious: Yes (Death)
  Sender: FDA-Public Use
  Company Number: US-ROCHE-2631617

PATIENT
  Age: 51 Year
  Sex: Female
  Weight: 83.99 kg

DRUGS (6)
  1. TNKASE [Suspect]
     Active Substance: TENECTEPLASE
     Indication: TYPE 2 DIABETES MELLITUS
  2. TNKASE [Suspect]
     Active Substance: TENECTEPLASE
     Indication: NAUSEA
  3. TNKASE [Suspect]
     Active Substance: TENECTEPLASE
     Indication: ESSENTIAL HYPERTENSION
  4. TNKASE [Suspect]
     Active Substance: TENECTEPLASE
     Indication: ACUTE MYOCARDIAL INFARCTION
     Route: 065
  5. TNKASE [Suspect]
     Active Substance: TENECTEPLASE
     Indication: CHEST PAIN
  6. TNKASE [Suspect]
     Active Substance: TENECTEPLASE
     Indication: HYPERGLYCAEMIA

REACTIONS (1)
  - Death [Fatal]

NARRATIVE: CASE EVENT DATE: 20200530
